FAERS Safety Report 23393457 (Version 1)
Quarter: 2024Q1

REPORT INFORMATION
  Report Type: Spontaneous
  Country: CN (occurrence: CN)
  Receive Date: 20240111
  Receipt Date: 20240111
  Transmission Date: 20240410
  Serious: Yes (Other)
  Sender: FDA-Public Use
  Company Number: CN-PFIZER INC-PV202400002592

PATIENT
  Age: 21 Month
  Sex: Female
  Weight: 10.5 kg

DRUGS (1)
  1. ZITHROMAX [Suspect]
     Active Substance: AZITHROMYCIN DIHYDRATE
     Indication: Pneumonia
     Dosage: 0.05 G, 1X/DAY
     Route: 048
     Dates: start: 20231106, end: 20231108

REACTIONS (4)
  - Pleural effusion [Unknown]
  - Rash [Recovering/Resolving]
  - Rash erythematous [Recovering/Resolving]
  - Cough [Unknown]

NARRATIVE: CASE EVENT DATE: 20231108
